FAERS Safety Report 8774410 (Version 5)
Quarter: 2014Q1

REPORT INFORMATION
  Report Type: Report from Study
  Country: JP (occurrence: JP)
  Receive Date: 20120907
  Receipt Date: 20140127
  Transmission Date: 20141002
  Serious: Yes (Hospitalization, Other)
  Sender: FDA-Public Use
  Company Number: JP-VERTEX PHARMACEUTICAL INC.-AE-2012-010959

PATIENT
  Age: 57 Year
  Sex: Male

DRUGS (64)
  1. PURSENNID [Concomitant]
     Dosage: 24 ML, QD
     Route: 048
     Dates: start: 20120917, end: 20120919
  2. CERCINE [Concomitant]
     Dosage: 10 MG, QD
     Route: 048
     Dates: start: 20120911, end: 20120911
  3. SOLDEM 3A [Concomitant]
     Dosage: 1000 ML, QD
     Route: 042
     Dates: start: 20120912, end: 20120913
  4. SOLDEM 3A [Concomitant]
     Dosage: 1000 ML, QD
     Route: 042
     Dates: start: 20120918, end: 20120918
  5. LACTEC [Concomitant]
     Dosage: 1000 ML, QD
     Route: 042
     Dates: start: 20120912, end: 20120913
  6. LACTEC [Concomitant]
     Dosage: 500 ML, QD
     Route: 042
     Dates: start: 20120918, end: 20120918
  7. XYLOCAINE JELLY [Concomitant]
     Dosage: 5 ML, QD
     Dates: start: 20120912, end: 20120912
  8. KENEI G [Concomitant]
     Dosage: 60 ML, QD
     Route: 054
     Dates: start: 20120912, end: 20120912
  9. PENTAGIN [Concomitant]
     Dosage: 15 MG, QD
     Route: 058
     Dates: start: 20120912, end: 20120912
  10. PENTAGIN [Concomitant]
     Dosage: 30 MG, QD
     Route: 042
     Dates: start: 20120918, end: 20120918
  11. ATROPINE SULFATE [Concomitant]
     Dosage: 0.5 DF, UNK
     Route: 058
     Dates: start: 20120912, end: 20120912
  12. GRANISETRON [Concomitant]
     Dosage: 3 MG, QD
     Route: 042
     Dates: start: 20120912, end: 20120912
  13. GRANISETRON [Concomitant]
     Dosage: 30 MG, QD
     Route: 051
     Dates: start: 20120912, end: 20120912
  14. ISOTONIC SODIUM CHLORIDE SOLUTION [Concomitant]
     Dosage: 200 MG, QD
     Route: 042
     Dates: start: 20120912, end: 20120917
  15. ISOTONIC SODIUM CHLORIDE SOLUTION [Concomitant]
     Dosage: 1500 MG, QD
     Route: 051
     Dates: start: 20120912, end: 20120912
  16. CEFMETAZOLE [Concomitant]
     Dosage: 2 G, QD
     Dates: start: 20120912, end: 20120917
  17. XYLOCAINE [Concomitant]
     Dosage: 10 ML, QD
     Route: 051
     Dates: start: 20120912, end: 20120912
  18. XYLOCAINE [Concomitant]
     Dosage: 10 ML, QD
     Route: 051
     Dates: start: 20120918, end: 20120918
  19. HEPARIN SODIUM [Concomitant]
     Dosage: 15 ML, QD
     Route: 051
     Dates: start: 20120912, end: 20120912
  20. LIPLE [Concomitant]
     Dosage: 1 ML, QD
     Route: 051
     Dates: start: 20120912, end: 20120912
  21. OPTIRAY [Concomitant]
     Dosage: 100 ML, QD
     Route: 051
     Dates: start: 20120912, end: 20120912
  22. LIPIODOL ULTRA-FLUIDE [Concomitant]
     Dosage: 10 ML, QD
     Route: 051
     Dates: start: 20120912, end: 20120912
  23. POPIYODON [Concomitant]
     Dosage: 70 ML, QD
     Route: 051
     Dates: start: 20120912, end: 20120912
  24. POPIYODON [Concomitant]
     Dosage: 5 ML, QD
     Route: 051
     Dates: start: 20120913, end: 20120914
  25. POPIYODON [Concomitant]
     Dosage: 5 ML, QD
     Route: 051
     Dates: start: 20120919, end: 20120919
  26. HEPAFLUSH [Concomitant]
     Dosage: 10 ML, QD
     Route: 042
     Dates: start: 20120913, end: 20120913
  27. HEPAFLUSH [Concomitant]
     Dosage: 20 ML, QD
     Route: 042
     Dates: start: 20120914, end: 20120914
  28. HEPAFLUSH [Concomitant]
     Dosage: 10 ML, QD
     Route: 042
     Dates: start: 20120915, end: 20120915
  29. HEPAFLUSH [Concomitant]
     Dosage: 10 ML, QD
     Route: 042
     Dates: start: 20120918, end: 20120918
  30. HEPAFLUSH [Concomitant]
     Dosage: 20 ML, QD
     Route: 042
     Dates: start: 20120919, end: 20120920
  31. HEPAFLUSH [Concomitant]
     Dosage: 10 ML, QD
     Route: 042
     Dates: start: 20120921, end: 20120921
  32. HEPAFLUSH [Concomitant]
     Dosage: 20 ML, QD
     Route: 042
     Dates: start: 20120922, end: 20120922
  33. HEPAFLUSH [Concomitant]
     Dosage: 10 ML, QD
     Route: 042
     Dates: start: 20120923, end: 20120923
  34. WYSTAL [Concomitant]
     Dosage: 2 G, QD
     Route: 042
     Dates: start: 20120918, end: 20120923
  35. WYSTAL [Concomitant]
     Dosage: 1 G, QD
     Route: 042
     Dates: start: 20120924, end: 20120924
  36. ANHYDROUS ETHANOL [Concomitant]
     Dosage: 5 ML, QD
     Route: 051
     Dates: start: 20120918, end: 20120918
  37. TRANSAMIN [Concomitant]
     Dosage: 20 ML, QD
     Route: 042
     Dates: start: 20120918, end: 20120918
  38. XYLOCAINE JELLY [Concomitant]
     Dosage: 30 ML, QD
     Route: 051
     Dates: start: 20120918, end: 20120918
  39. NEO-MINOPHAGEN C [Concomitant]
     Dosage: 40 ML, QD
     Route: 042
     Dates: start: 20121029, end: 20130121
  40. PL (NON-PYRINE COLD PREPARATION) OTHER THERAPEUTIC PRODUCTS [Concomitant]
     Dosage: 3 G, QD
     Route: 048
     Dates: start: 20121112, end: 20121116
  41. DOXORUBICIN HYDROCHLORIDE [Concomitant]
     Dosage: 30 MG, QD
     Route: 051
     Dates: start: 20120912, end: 20120912
  42. VX-950 (TELAPREVIR) [Suspect]
     Indication: CHRONIC HEPATITIS C
     Dosage: 2250 MG, QD
     Route: 048
     Dates: start: 20120604, end: 20120819
  43. RIBAVIRIN [Suspect]
     Indication: CHRONIC HEPATITIS C
     Dosage: 800 MG, QD
     Route: 048
     Dates: start: 20120604, end: 20120708
  44. RIBAVIRIN [Suspect]
     Dosage: 400 MG, QD
     Route: 048
     Dates: start: 20120709, end: 20120716
  45. RIBAVIRIN [Suspect]
     Dosage: 300 MG, QD
     Route: 048
     Dates: start: 20120717, end: 20120819
  46. RIBAVIRIN [Suspect]
     Dosage: 200 MG, QD
     Route: 048
     Dates: start: 20120903, end: 20120909
  47. RIBAVIRIN [Suspect]
     Dosage: 200 MG, QD
     Route: 048
     Dates: start: 20121001, end: 20121014
  48. RIBAVIRIN [Suspect]
     Dosage: 400 MG, QD
     Route: 048
     Dates: start: 20121015, end: 20121021
  49. RIBAVIRIN [Suspect]
     Dosage: 600 MG, QD
     Route: 048
     Dates: start: 20121022, end: 20121111
  50. RIBAVIRIN [Suspect]
     Dosage: 700 MG, QD
     Route: 048
     Dates: start: 20121112, end: 20121118
  51. RIBAVIRIN [Suspect]
     Dosage: 800 MG, QD
     Route: 048
     Dates: start: 20121119
  52. PEGINTRON [Suspect]
     Indication: CHRONIC HEPATITIS C
     Dosage: 1.5 ?G/KG, QW
     Route: 058
     Dates: start: 20120604, end: 20120909
  53. PEGINTRON [Suspect]
     Dosage: 1.5 ?G/KG, QW
     Route: 058
     Dates: start: 20121001, end: 20121008
  54. PEGINTRON [Suspect]
     Dosage: 0.9 ?G/KG, QW
     Route: 058
     Dates: start: 20121009, end: 20121014
  55. PEGINTRON [Suspect]
     Dosage: 1.5 ?G/KG, QW
     Route: 058
     Dates: start: 20121015, end: 20121203
  56. URSO [Concomitant]
     Dosage: 600 MG, QD
     Route: 048
     Dates: end: 20120722
  57. URSO [Concomitant]
     Dosage: 300 MG, QD
     Route: 048
     Dates: start: 20120723, end: 20130217
  58. OMEPRAL [Concomitant]
     Dosage: 20 MG, QD
     Route: 048
     Dates: end: 20120611
  59. GOODMIN [Concomitant]
     Dosage: 0.5 MG, QD
     Route: 048
     Dates: end: 20120701
  60. GOODMIN [Concomitant]
     Dosage: 0.25 UNK, UNK
     Route: 048
     Dates: start: 20120702, end: 20130217
  61. LOXOPROFEN [Concomitant]
     Dosage: 60 MG, QD
     Route: 048
     Dates: start: 20120604, end: 20120701
  62. MUCOSTA [Concomitant]
     Dosage: 100 MG, QD
     Route: 048
     Dates: start: 20120604, end: 20120701
  63. AMOBAN [Concomitant]
     Dosage: 7.5 MG, QD
     Route: 048
     Dates: start: 20120625, end: 20120701
  64. PURSENNID [Concomitant]
     Dosage: 24 MG, QD
     Route: 048
     Dates: start: 20120911, end: 20120911

REACTIONS (3)
  - White blood cell count decreased [Recovered/Resolved]
  - Hepatocellular carcinoma [Recovered/Resolved]
  - Neutrophil percentage abnormal [Recovered/Resolved]
